FAERS Safety Report 24640182 (Version 2)
Quarter: 2025Q3

REPORT INFORMATION
  Report Type: Spontaneous
  Country: EU (occurrence: EU)
  Receive Date: 20241120
  Receipt Date: 20250809
  Transmission Date: 20251020
  Serious: Yes (Other)
  Sender: ALEXION PHARMACEUTICALS
  Company Number: EU-AstraZeneca-CH-00746004A

PATIENT
  Age: 75 Year
  Sex: Female

DRUGS (1)
  1. CALQUENCE [Suspect]
     Active Substance: ACALABRUTINIB
     Route: 065

REACTIONS (8)
  - Thrombocytopenia [Unknown]
  - Hepatic cytolysis [Unknown]
  - Oedema [Unknown]
  - Erythema [Unknown]
  - Hypotension [Unknown]
  - Lymphopenia [Unknown]
  - Anaemia [Unknown]
  - Diarrhoea [Unknown]
